FAERS Safety Report 4945947-2 (Version None)
Quarter: 2006Q1

REPORT INFORMATION
  Report Type: 
  Country: None (occurrence: None)
  Receive Date: 20060203
  Receipt Date: 20051011
  Transmission Date: 20060701
  Serious: Yes (Other)
  Sender: FDA-Public Use
  Company Number: PHEH2005US11401

PATIENT
  Age: 12 Year
  Sex: Male

DRUGS (1)
  1. TEGRETOL [Suspect]
     Indication: CONVULSION
     Dosage: 300 MG,BID,ORAL
     Route: 048
     Dates: start: 20050711, end: 20050723

REACTIONS (4)
  - DISTURBANCE IN ATTENTION [None]
  - IDIOSYNCRATIC DRUG REACTION [None]
  - THROMBOCYTOPENIC PURPURA [None]
  - VERTIGO [None]
